FAERS Safety Report 7913028-1 (Version None)
Quarter: 2011Q4

REPORT INFORMATION
  Report Type: 
  Country: None (occurrence: None)
  Receive Date: 20111114
  Receipt Date: 20111109
  Transmission Date: 20120403
  Serious: Yes (Life-Threatening, Hospitalization, Other)
  Sender: FDA-Public Use
  Company Number: FR-BAYER-2011-085478

PATIENT
  Age: 23 Year
  Sex: Female
  Weight: 69 kg

DRUGS (2)
  1. VALACYCLOVIR HYDROCHLORIDE [Concomitant]
  2. ESTRADIOL VALERATE/DIENOGEST [Suspect]
     Dosage: UNK
     Dates: start: 20110201

REACTIONS (6)
  - ECTOPIC PREGNANCY [None]
  - METRORRHAGIA [None]
  - PELVIC PAIN [None]
  - ABDOMINAL PAIN [None]
  - PAIN [None]
  - HAEMORRHAGE [None]
